FAERS Safety Report 24717586 (Version 2)
Quarter: 2025Q1

REPORT INFORMATION
  Report Type: Spontaneous
  Country: US (occurrence: US)
  Receive Date: 20241210
  Receipt Date: 20250220
  Transmission Date: 20250409
  Serious: Yes (Other)
  Sender: PFIZER
  Company Number: US-PFIZER INC-PV202400158692

PATIENT
  Age: 73 Year
  Sex: Female
  Weight: 79.819 kg

DRUGS (7)
  1. IBRANCE [Suspect]
     Active Substance: PALBOCICLIB
     Indication: Breast cancer metastatic
     Route: 048
     Dates: start: 202202
  2. IBRANCE [Suspect]
     Active Substance: PALBOCICLIB
     Indication: Hormone receptor positive breast cancer
     Dosage: 125 MG, 1X/DAY
     Route: 048
  3. IBRANCE [Suspect]
     Active Substance: PALBOCICLIB
     Indication: HER2 negative breast cancer
  4. LETROZOLE [Suspect]
     Active Substance: LETROZOLE
     Indication: Breast cancer stage I
     Dates: start: 202202, end: 2022
  5. FASLODEX [Concomitant]
     Active Substance: FULVESTRANT
     Indication: Breast cancer metastatic
     Dates: start: 2022
  6. FASLODEX [Concomitant]
     Active Substance: FULVESTRANT
     Indication: Hormone receptor positive breast cancer
  7. FASLODEX [Concomitant]
     Active Substance: FULVESTRANT
     Indication: HER2 negative breast cancer

REACTIONS (11)
  - Neutropenia [Unknown]
  - Blood sodium decreased [Unknown]
  - White blood cell count decreased [Unknown]
  - Red blood cell count decreased [Unknown]
  - Haemoglobin decreased [Unknown]
  - Haematocrit decreased [Unknown]
  - Mean cell volume increased [Unknown]
  - Red cell distribution width increased [Unknown]
  - Platelet count decreased [Unknown]
  - Monocyte count increased [Unknown]
  - Lymphocyte count decreased [Unknown]

NARRATIVE: CASE EVENT DATE: 20241105
